FAERS Safety Report 6194366-2 (Version None)
Quarter: 2009Q2

REPORT INFORMATION
  Report Type: 
  Country: None (occurrence: None)
  Receive Date: 20090519
  Receipt Date: 20090507
  Transmission Date: 20091009
  Serious: Yes (Hospitalization, Disabling, Other)
  Sender: FDA-Public Use
  Company Number: DK-JNJFOC-20090502006

PATIENT
  Sex: Female
  Weight: 66.5 kg

DRUGS (4)
  1. REMICADE [Suspect]
     Dosage: 2002 ^NORMAL DOSE^  2004-DOSE DOUBLED
     Route: 042
  2. REMICADE [Suspect]
     Indication: RHEUMATOID ARTHRITIS
     Dosage: ^NORMAL DOSE^
     Route: 042
  3. ADALIMUMAB [Suspect]
     Indication: RHEUMATOID ARTHRITIS
     Route: 058
     Dates: start: 20051004
  4. METHOTREXATE [Concomitant]

REACTIONS (6)
  - BREAST CANCER [None]
  - DISSEMINATED TUBERCULOSIS [None]
  - DRUG INEFFECTIVE [None]
  - GLOSSITIS [None]
  - PALPITATIONS [None]
  - THROAT IRRITATION [None]
